FAERS Safety Report 5379738-8 (Version None)
Quarter: 2007Q3

REPORT INFORMATION
  Report Type: 
  Country: None (occurrence: None)
  Receive Date: 20070706
  Receipt Date: 20070702
  Transmission Date: 20080115
  Serious: Yes (Death)
  Sender: FDA-Public Use
  Company Number: PHBS2007FI09815

PATIENT
  Age: 30 Year
  Sex: Male

DRUGS (4)
  1. LEPONEX [Suspect]
     Dosage: 200 MG
     Route: 048
  2. ALCOHOL [Suspect]
  3. OXAZEPAM [Suspect]
  4. IXEL [Concomitant]

REACTIONS (7)
  - ANTIPSYCHOTIC DRUG LEVEL INCREASED [None]
  - BLOOD ALCOHOL INCREASED [None]
  - BLOOD PRESSURE DECREASED [None]
  - DYSARTHRIA [None]
  - INTENTIONAL DRUG MISUSE [None]
  - LOSS OF CONSCIOUSNESS [None]
  - POISONING [None]
